FAERS Safety Report 5326209-0 (Version None)
Quarter: 2007Q2

REPORT INFORMATION
  Report Type: 
  Country: None (occurrence: None)
  Receive Date: 20070516
  Receipt Date: 20070514
  Transmission Date: 20071010
  Serious: Yes (Life-Threatening)
  Sender: FDA-Public Use
  Company Number: CA-ASTRAZENECA-2007AC00874

PATIENT
  Age: 3 Month
  Sex: Male

DRUGS (1)
  1. LIDOCAINE [Suspect]
     Indication: LOCAL ANAESTHESIA
     Route: 061

REACTIONS (2)
  - ACCIDENTAL OVERDOSE [None]
  - GRAND MAL CONVULSION [None]
